FAERS Safety Report 7291184-9 (Version None)
Quarter: 2011Q1

REPORT INFORMATION
  Report Type: 
  Country: None (occurrence: None)
  Receive Date: 20110214
  Receipt Date: 20110202
  Transmission Date: 20110831
  Serious: Yes (Life-Threatening)
  Sender: FDA-Public Use
  Company Number: JP-MERCK-1012USA03897

PATIENT
  Age: 73 Year
  Sex: Male

DRUGS (10)
  1. ASPIRIN [Concomitant]
     Route: 065
  2. ATELEC [Concomitant]
     Route: 065
     Dates: end: 20100913
  3. LASIX [Concomitant]
     Route: 065
  4. JANUVIA [Suspect]
     Indication: TYPE 2 DIABETES MELLITUS
     Route: 048
     Dates: start: 20100913, end: 20101209
  5. CO DIO [Concomitant]
     Route: 065
     Dates: start: 20090909, end: 20101219
  6. LIPITOR [Concomitant]
     Route: 065
  7. PARIET [Concomitant]
     Route: 065
  8. ZYLORIC [Concomitant]
     Route: 065
  9. CARDENALIN [Concomitant]
     Route: 065
  10. ATELEC [Concomitant]
     Route: 065
     Dates: start: 20100914

REACTIONS (1)
  - BRADYCARDIA [None]
